FAERS Safety Report 4995377-2 (Version None)
Quarter: 2006Q2

REPORT INFORMATION
  Report Type: 
  Country: None (occurrence: None)
  Receive Date: 20060503
  Receipt Date: 20060420
  Transmission Date: 20061013
  Serious: Yes (Hospitalization)
  Sender: FDA-Public Use
  Company Number: M-06-0340

PATIENT
  Age: 46 Year
  Sex: Female

DRUGS (2)
  1. CALCITONIN SALMON [Suspect]
     Indication: OSTEOPOROSIS
     Dosage: 100 IU, QD, S.C.
     Route: 058
     Dates: start: 20030725, end: 20030801
  2. CALCIUM CARBONATE [Suspect]
     Indication: OSTEOPOROSIS
     Dosage: 1.5 G, QD, PO
     Route: 048
     Dates: start: 20030725

REACTIONS (10)
  - BLOOD PRESSURE INCREASED [None]
  - BRAIN STEM SYNDROME [None]
  - DEPRESSED LEVEL OF CONSCIOUSNESS [None]
  - FALL [None]
  - FLUSHING [None]
  - HEART RATE INCREASED [None]
  - NAUSEA [None]
  - PERIODIC LIMB MOVEMENT DISORDER [None]
  - RESTLESSNESS [None]
  - STATUS EPILEPTICUS [None]
